FAERS Safety Report 14553760 (Version 1)
Quarter: 2018Q1

REPORT INFORMATION
  Report Type: Spontaneous
  Country: FI (occurrence: FI)
  Receive Date: 20180220
  Receipt Date: 20180220
  Transmission Date: 20180509
  Serious: Yes (Hospitalization)
  Sender: FDA-Public Use
  Company Number: PHHY2018FI021480

PATIENT
  Age: 61 Year
  Sex: Female

DRUGS (1)
  1. PIPERACILLIN AND TAZOBACTAM [Suspect]
     Active Substance: PIPERACILLIN SODIUM\TAZOBACTAM SODIUM
     Indication: SEPSIS
     Dosage: 4 G, TID
     Route: 042

REACTIONS (2)
  - Therapy non-responder [Unknown]
  - Clostridium difficile infection [Not Recovered/Not Resolved]
